FAERS Safety Report 10137182 (Version 1)
Quarter: 2014Q2

REPORT INFORMATION
  Report Type: Spontaneous
  Country: US (occurrence: None)
  Receive Date: 20140428
  Receipt Date: 20140428
  Transmission Date: 20141212
  Serious: Yes (Hospitalization)
  Sender: FDA-Public Use
  Company Number: None

PATIENT
  Age: 49 Year
  Sex: Female
  Weight: 65.77 kg

DRUGS (1)
  1. NORETHINDRONE [Suspect]
     Indication: MENORRHAGIA
     Dosage: 2 PILLS ONCE DAILY
     Dates: start: 20140408, end: 20140417

REACTIONS (2)
  - Menorrhagia [None]
  - Vertigo [None]
